FAERS Safety Report 9069023 (Version 1)
Quarter: 2013Q1

REPORT INFORMATION
  Report Type: Spontaneous
  Country: US (occurrence: None)
  Receive Date: 20130213
  Receipt Date: 20130213
  Transmission Date: 20140127
  Serious: Yes (Death, Hospitalization)
  Sender: FDA-Public Use
  Company Number: None

PATIENT
  Sex: Female
  Weight: 68.4 kg

DRUGS (2)
  1. CARBOPLATIN [Suspect]
     Dates: end: 20100505
  2. PACLITAXEL (TAXOL) [Suspect]
     Dates: end: 20100505

REACTIONS (3)
  - Myelodysplastic syndrome [None]
  - Neck pain [None]
  - Back pain [None]
